FAERS Safety Report 9137139 (Version 1)
Quarter: 2013Q1

REPORT INFORMATION
  Report Type: Report from Study
  Country: US (occurrence: US)
  Receive Date: 20130304
  Receipt Date: 20130304
  Transmission Date: 20140127
  Serious: Yes (Disabling)
  Sender: FDA-Public Use
  Company Number: US-ACTELION-A-NJ2013-79513

PATIENT
  Age: 85 Year
  Sex: Male

DRUGS (18)
  1. TRACLEER [Suspect]
     Indication: PULMONARY HYPERTENSION
     Dosage: 125 MG, BID
     Route: 048
     Dates: start: 20121219, end: 20130207
  2. TRACLEER [Suspect]
     Dosage: 62.5 MG, BID
     Route: 048
     Dates: start: 20121106, end: 20121218
  3. TRACLEER [Suspect]
     Dosage: 62.5 MG, BID
     Route: 048
     Dates: start: 20130208
  4. REVATIO [Concomitant]
     Dosage: 20 MG, UNK
  5. WARFARIN [Concomitant]
  6. ASPIRIN [Concomitant]
     Dosage: 81 MG, QD
  7. FUROSEMIDE [Concomitant]
     Dosage: 40 MG, BID
  8. SPIRONOLACTONE [Concomitant]
     Dosage: 25 MG, UNK
  9. FISH OIL [Concomitant]
     Dosage: 2400 MG, UNK
  10. LISINOPRIL [Concomitant]
     Dosage: 10 MG, UNK
  11. METFORMIN [Concomitant]
     Dosage: 500 MG, BID
  12. MULTIVITAMIN [Concomitant]
  13. PREDNISONE [Concomitant]
     Dosage: 20 MG, UNK
  14. PROAIR HFA [Concomitant]
     Dosage: UNK, PRN
  15. SIMVASTATIN [Concomitant]
     Dosage: 80 MG, UNK
  16. SYMBICORT [Concomitant]
     Dosage: UNK, BID
  17. TRICOR [Concomitant]
     Dosage: 145 MG, UNK
  18. VITAMIN D3 [Concomitant]
     Dosage: 1000 U, UNK

REACTIONS (4)
  - Feeling abnormal [Recovering/Resolving]
  - Chills [Recovering/Resolving]
  - Nasopharyngitis [Recovering/Resolving]
  - Decreased appetite [Recovering/Resolving]
